FAERS Safety Report 10214193 (Version 1)
Quarter: 2014Q2

REPORT INFORMATION
  Report Type: Spontaneous
  Country: FR (occurrence: None)
  Receive Date: 20140530
  Receipt Date: 20140530
  Transmission Date: 20141212
  Serious: Yes (Other)
  Sender: FDA-Public Use
  Company Number: HRA-MET20140013

PATIENT
  Age: 58 Year
  Sex: Female

DRUGS (2)
  1. METOPIRONE [Suspect]
     Indication: ACTH STIMULATION TEST
     Dates: start: 20140121, end: 20140121
  2. LIDOCAINE HYDROCHLORIDE [Concomitant]

REACTIONS (3)
  - Angioedema [None]
  - Urticaria [None]
  - Dysarthria [None]
